FAERS Safety Report 16039398 (Version 7)
Quarter: 2020Q2

REPORT INFORMATION
  Report Type: Report from Study
  Country: None (occurrence: NL)
  Receive Date: 20190306
  Receipt Date: 20200505
  Transmission Date: 20200713
  Serious: Yes (Hospitalization)
  Sender: FDA-Public Use
  Company Number: NL-ABBVIE-19S-114-2690302-00

PATIENT
  Sex: Male
  Weight: 92 kg

DRUGS (5)
  1. DUODOPA [Suspect]
     Active Substance: CARBIDOPA\LEVODOPA
     Dosage: MD: 9.4 ML CD: 2.5 ML ED: 3.0 ML
     Route: 050
  2. DUODOPA [Suspect]
     Active Substance: CARBIDOPA\LEVODOPA
     Dosage: MD 9.5 CD 2.5 ED 3.0
     Route: 050
  3. ZINC. [Concomitant]
     Active Substance: ZINC
     Indication: STOMA SITE REACTION
  4. DUODOPA [Suspect]
     Active Substance: CARBIDOPA\LEVODOPA
     Dosage: MD 9.2 CD 2.5 ED 3.0
     Route: 050
  5. DUODOPA [Suspect]
     Active Substance: CARBIDOPA\LEVODOPA
     Indication: PARKINSON^S DISEASE
     Dosage: MD: 9.7, CD: 2.7, ED: 3.0 16 HOUR ADMINISTRATION
     Route: 050
     Dates: start: 20130603

REACTIONS (20)
  - Bradykinesia [Not Recovered/Not Resolved]
  - Pain [Not Recovered/Not Resolved]
  - Gastric disorder [Not Recovered/Not Resolved]
  - Nocturia [Recovering/Resolving]
  - Dyskinesia [Recovering/Resolving]
  - Weight increased [Not Recovered/Not Resolved]
  - Fine motor skill dysfunction [Recovering/Resolving]
  - Weight decreased [Not Recovered/Not Resolved]
  - Hyperkinesia [Not Recovered/Not Resolved]
  - Disinhibition [Not Recovered/Not Resolved]
  - Stress [Not Recovered/Not Resolved]
  - Impulsive behaviour [Not Recovered/Not Resolved]
  - Parkinson^s disease [Not Recovered/Not Resolved]
  - Unevaluable event [Not Recovered/Not Resolved]
  - Attention deficit hyperactivity disorder [Not Recovered/Not Resolved]
  - Mental disorder [Not Recovered/Not Resolved]
  - Restlessness [Not Recovered/Not Resolved]
  - Musculoskeletal stiffness [Not Recovered/Not Resolved]
  - Intervertebral disc protrusion [Not Recovered/Not Resolved]
  - On and off phenomenon [Not Recovered/Not Resolved]

NARRATIVE: CASE EVENT DATE: 2018
